FAERS Safety Report 11539514 (Version 1)
Quarter: 2015Q3

REPORT INFORMATION
  Report Type: Spontaneous
  Country: US (occurrence: US)
  Receive Date: 20150923
  Receipt Date: 20150923
  Transmission Date: 20151125
  Serious: Yes (Life-Threatening, Hospitalization, Other)
  Sender: FDA-Public Use
  Company Number: US-ACTAVIS-2015-20297

PATIENT
  Age: 32 Year
  Sex: Male

DRUGS (2)
  1. OLANZAPINE (UNKNOWN) [Suspect]
     Active Substance: OLANZAPINE
     Indication: AGGRESSION
     Dosage: 10 MG, TOTAL
     Route: 030
  2. HYDROCODONE-ACETAMINOPHEN (WATSON LABORATORIES) [Suspect]
     Active Substance: ACETAMINOPHEN\HYDROCODONE
     Indication: INTENTIONAL SELF-INJURY
     Dosage: UNK
     Route: 048

REACTIONS (9)
  - Hypoxia [Recovered/Resolved]
  - Miosis [Recovered/Resolved]
  - Unresponsive to stimuli [Recovered/Resolved]
  - Respiratory depression [Recovered/Resolved]
  - Bradycardia [Recovered/Resolved]
  - Somnolence [Recovered/Resolved]
  - Overdose [Recovered/Resolved]
  - Intentional self-injury [Recovered/Resolved]
  - Spasmodic dysphonia [Recovered/Resolved]
